FAERS Safety Report 22034652 (Version 4)
Quarter: 2023Q2

REPORT INFORMATION
  Report Type: Spontaneous
  Country: US (occurrence: US)
  Receive Date: 20230224
  Receipt Date: 20230505
  Transmission Date: 20230721
  Serious: Yes (Other)
  Sender: FDA-Public Use
  Company Number: US-PFIZER INC-202300081248

PATIENT
  Age: 57 Year
  Sex: Female
  Weight: 97.052 kg

DRUGS (1)
  1. PAXLOVID [Suspect]
     Active Substance: NIRMATRELVIR\RITONAVIR
     Indication: COVID-19 treatment
     Dosage: UNK
     Dates: start: 20230221, end: 20230222

REACTIONS (10)
  - Cholecystectomy [Recovered/Resolved]
  - Pancreatectomy [Recovered/Resolved]
  - Appendicectomy [Unknown]
  - Abdominal discomfort [Recovered/Resolved]
  - Dysgeusia [Recovered/Resolved]
  - Diarrhoea [Recovered/Resolved]
  - Abdominal pain upper [Recovered/Resolved]
  - Gastrointestinal pain [Unknown]
  - Nausea [Unknown]
  - Incorrect dose administered [Recovered/Resolved]

NARRATIVE: CASE EVENT DATE: 20230221
